FAERS Safety Report 9200410 (Version 1)
Quarter: 2013Q1

REPORT INFORMATION
  Report Type: Spontaneous
  Country: GB (occurrence: GB)
  Receive Date: 20130329
  Receipt Date: 20130329
  Transmission Date: 20140127
  Serious: Yes (Other)
  Sender: FDA-Public Use
  Company Number: GB-PFIZER INC-2013097341

PATIENT
  Age: 45 Year
  Sex: Female
  Weight: 86 kg

DRUGS (1)
  1. CHAMPIX [Suspect]
     Indication: SMOKING CESSATION THERAPY
     Dosage: 1 MG, 2X/DAY
     Route: 048
     Dates: start: 20130116, end: 20130226

REACTIONS (2)
  - Blister [Recovering/Resolving]
  - Rash [Recovering/Resolving]
